FAERS Safety Report 5710314-0 (Version None)
Quarter: 2008Q2

REPORT INFORMATION
  Report Type: 
  Country: None (occurrence: None)
  Receive Date: 20080418
  Receipt Date: 20080408
  Transmission Date: 20081010
  Serious: Yes (Other)
  Sender: FDA-Public Use
  Company Number: JP-PFIZER INC-2008028956

PATIENT
  Age: 81 Year
  Sex: Female

DRUGS (7)
  1. EPLERENONE [Suspect]
     Indication: CARDIAC FAILURE
     Route: 048
  2. EPLERENONE [Suspect]
     Route: 048
  3. BLOPRESS [Concomitant]
     Route: 048
  4. ARTIST [Concomitant]
     Route: 048
  5. LASIX [Concomitant]
  6. HANP [Concomitant]
     Route: 042
  7. CORETEC [Concomitant]
     Route: 042

REACTIONS (2)
  - BLOOD POTASSIUM INCREASED [None]
  - PLATELET COUNT DECREASED [None]
